FAERS Safety Report 12709134 (Version 1)
Quarter: 2016Q3

REPORT INFORMATION
  Report Type: Spontaneous
  Country: CL (occurrence: None)
  Receive Date: 20160901
  Receipt Date: 20160901
  Transmission Date: 20161109
  Serious: Yes (Disabling)
  Sender: FDA-Public Use
  Company Number: None

PATIENT
  Age: 41 Year
  Sex: Male
  Weight: 82 kg

DRUGS (2)
  1. MULTIVITAMINIC [Concomitant]
  2. TAMIFLU [Suspect]
     Active Substance: OSELTAMIVIR PHOSPHATE
     Indication: INFLUENZA
     Route: 048
     Dates: start: 20160724, end: 20160725

REACTIONS (4)
  - Insomnia [None]
  - Restlessness [None]
  - Anxiety [None]
  - Mental disorder [None]

NARRATIVE: CASE EVENT DATE: 20160724
